FAERS Safety Report 18391051 (Version 1)
Quarter: 2020Q4

REPORT INFORMATION
  Report Type: Spontaneous
  Country: US (occurrence: US)
  Receive Date: 20201016
  Receipt Date: 20201016
  Transmission Date: 20210114
  Serious: No
  Sender: FDA-Public Use
  Company Number: US-AUROBINDO-AUR-APL-2020-033869

PATIENT
  Age: 61 Year
  Sex: Male
  Weight: 77 kg

DRUGS (3)
  1. PROZAC [Concomitant]
     Active Substance: FLUOXETINE HYDROCHLORIDE
     Indication: PRODUCT USED FOR UNKNOWN INDICATION
     Dosage: 20 MILLIGRAM, DAILY
     Route: 065
  2. DOXEPIN HYDROCHLORIDE CAPSULES USP 50 MG [Suspect]
     Active Substance: DOXEPIN HYDROCHLORIDE
     Indication: DEPRESSION
     Dosage: 3 DOSAGE FORM (THREE CAPSULES OF 50 MG), DAILY AT BED TIME
     Route: 065
     Dates: start: 202006
  3. LITHIUM. [Concomitant]
     Active Substance: LITHIUM
     Indication: PRODUCT USED FOR UNKNOWN INDICATION
     Dosage: 300 MILLIGRAM, DAILY
     Route: 065

REACTIONS (5)
  - Middle insomnia [Unknown]
  - Poor quality sleep [Unknown]
  - Night sweats [Unknown]
  - Drug ineffective [Unknown]
  - Product substitution issue [Unknown]
